FAERS Safety Report 9904654 (Version 1)
Quarter: 2014Q1

REPORT INFORMATION
  Report Type: Report from Study
  Country: US (occurrence: US)
  Receive Date: 20140218
  Receipt Date: 20140218
  Transmission Date: 20141002
  Serious: Yes (Hospitalization)
  Sender: FDA-Public Use
  Company Number: US-PFIZER INC-2014043241

PATIENT
  Age: 58 Year
  Sex: Female
  Weight: 110 kg

DRUGS (2)
  1. CISPLATIN [Suspect]
     Indication: CARCINOID TUMOUR PULMONARY
     Dosage: CYCLIC
  2. ETOPOSIDE [Suspect]
     Indication: CARCINOID TUMOUR PULMONARY
     Dosage: CYCLIC

REACTIONS (4)
  - Oesophagitis [Unknown]
  - Dehydration [Unknown]
  - Hypotension [Unknown]
  - Asthenia [Unknown]
